FAERS Safety Report 6556486-X (Version None)
Quarter: 2010Q1

REPORT INFORMATION
  Report Type: 
  Country: None (occurrence: None)
  Receive Date: 20100125
  Receipt Date: 20100115
  Transmission Date: 20100710
  Serious: Yes (Other)
  Sender: FDA-Public Use
  Company Number: 2010AL000362

PATIENT
  Age: 82 Year
  Sex: 0

DRUGS (1)
  1. DOXAZOSIN MESYLATE [Suspect]
     Indication: HYPERTENSION
     Dosage: 1 MG; PO
     Route: 048

REACTIONS (2)
  - FLOPPY IRIS SYNDROME [None]
  - PROCEDURAL COMPLICATION [None]
